FAERS Safety Report 9701360 (Version 1)
Quarter: 2013Q4

REPORT INFORMATION
  Report Type: Spontaneous
  Country: US (occurrence: US)
  Receive Date: 20131121
  Receipt Date: 20131121
  Transmission Date: 20140711
  Serious: No
  Sender: FDA-Public Use
  Company Number: US-GILEAD-2008-0016653

PATIENT
  Age: 84 Year
  Sex: Female
  Weight: 56.7 kg

DRUGS (10)
  1. LETAIRIS [Suspect]
     Indication: PULMONARY HYPERTENSION
     Route: 048
  2. REVATIO [Concomitant]
     Route: 048
  3. ARICEPT [Concomitant]
     Route: 048
  4. LEXAPRO [Concomitant]
     Route: 048
  5. SPIRONOLACTONE [Concomitant]
     Route: 048
  6. LASIX [Concomitant]
     Route: 048
  7. TYLENOL [Concomitant]
     Route: 048
  8. BONIVA [Concomitant]
     Route: 048
  9. COLACE [Concomitant]
     Route: 048
  10. K-DUR [Concomitant]
     Route: 048

REACTIONS (1)
  - Aggression [Not Recovered/Not Resolved]
